FAERS Safety Report 8601136 (Version 2)
Quarter: 2012Q4

REPORT INFORMATION
  Report Type: 
  Country: US (occurrence: US)
  Receive Date: 20120606
  Receipt Date: 20121018
  Transmission Date: 20130627
  Serious: Yes (Death)
  Sender: FDA-Public Use
  Company Number: US-ELI_LILLY_AND_COMPANY-US201205009290

PATIENT
  Age: 50 Year
  Sex: Female
  Weight: 68.03 kg

DRUGS (8)
  1. CYMBALTA [Suspect]
     Indication: DEPRESSION
     Dosage: 60 mg, qd
     Dates: start: 20070525
  2. CYMBALTA [Suspect]
     Dosage: 60 mg, qd
  3. AMBIEN [Concomitant]
  4. SYNTHROID [Concomitant]
  5. CLONIDINE [Concomitant]
  6. IBUPROFEN [Concomitant]
  7. CLARITIN [Concomitant]
  8. FIORICET [Concomitant]

REACTIONS (1)
  - Completed suicide [Fatal]
